FAERS Safety Report 7739191-3 (Version None)
Quarter: 2011Q3

REPORT INFORMATION
  Report Type: 
  Country: None (occurrence: None)
  Receive Date: 20110909
  Receipt Date: 20110830
  Transmission Date: 20111222
  Serious: Yes (Other)
  Sender: FDA-Public Use
  Company Number: US-JNJFOC-20110901808

PATIENT
  Sex: Male
  Weight: 70.31 kg

DRUGS (5)
  1. DURAGESIC-100 [Suspect]
     Indication: BACK PAIN
     Route: 062
     Dates: start: 20110101, end: 20110801
  2. OXYCODONE HCL [Concomitant]
     Indication: BREAKTHROUGH PAIN
     Dosage: AS AND WHEN REQUIRED
     Route: 048
     Dates: start: 20110101
  3. DURAGESIC-100 [Suspect]
     Route: 062
     Dates: start: 20110101, end: 20110801
  4. DURAGESIC-100 [Suspect]
     Indication: SPINAL OPERATION
     Route: 062
     Dates: start: 20110801
  5. DURAGESIC-100 [Suspect]
     Route: 062
     Dates: start: 20110801

REACTIONS (6)
  - FEELING OF BODY TEMPERATURE CHANGE [None]
  - ANXIETY [None]
  - FEELING ABNORMAL [None]
  - BALANCE DISORDER [None]
  - FALL [None]
  - DYSPNOEA [None]
